FAERS Safety Report 5585776-2 (Version None)
Quarter: 2008Q1

REPORT INFORMATION
  Report Type: 
  Country: None (occurrence: None)
  Receive Date: 20080109
  Receipt Date: 20071214
  Transmission Date: 20080703
  Serious: No
  Sender: FDA-Public Use
  Company Number: US-BAYER-200712765BCC

PATIENT
  Age: 23 Year
  Sex: Female
  Weight: 57 kg

DRUGS (2)
  1. MIDOL EXTENDED RELIEF CAPLETS [Suspect]
     Indication: MIGRAINE
     Route: 048
     Dates: start: 20070818
  2. ALCOHOL [Suspect]
     Indication: DRUG USE FOR UNKNOWN INDICATION
     Dates: start: 20070801

REACTIONS (2)
  - HYPOAESTHESIA [None]
  - PARAESTHESIA [None]
